FAERS Safety Report 7499895-7 (Version None)
Quarter: 2011Q2

REPORT INFORMATION
  Report Type: 
  Country: None (occurrence: None)
  Receive Date: 20110517
  Receipt Date: 20110510
  Transmission Date: 20111010
  Serious: Yes (Other)
  Sender: FDA-Public Use
  Company Number: 2011SP021208

PATIENT
  Age: 56 Year
  Sex: Male
  Weight: 89.3 kg

DRUGS (8)
  1. TRABECTEDIN [Suspect]
     Indication: LEIOMYOSARCOMA METASTATIC
     Dosage: 1.5 MG/M2; ONCE; IV
     Route: 042
     Dates: start: 20100923, end: 20100923
  2. TRABECTEDIN [Suspect]
     Indication: LEIOMYOSARCOMA METASTATIC
     Dosage: 1.5 MG/M2; ONCE; IV
     Route: 042
     Dates: start: 20100902, end: 20100902
  3. TRABECTEDIN [Suspect]
     Indication: LEIOMYOSARCOMA METASTATIC
     Dosage: 1.5 MG/M2; ONCE; IV
     Route: 042
     Dates: start: 20101026, end: 20101026
  4. LITHIUM CARBONATE [Concomitant]
  5. DEXAMETHASONE [Suspect]
     Indication: PREMEDICATION
     Dosage: 20 MG; ONCE; IV
     Route: 042
     Dates: start: 20100902, end: 20100902
  6. DEXAMETHASONE [Suspect]
     Indication: PREMEDICATION
     Dosage: 20 MG; ONCE; IV
     Route: 042
     Dates: start: 20101026, end: 20101026
  7. DEXAMETHASONE [Suspect]
     Indication: PREMEDICATION
     Dosage: 20 MG; ONCE; IV
     Route: 042
     Dates: start: 20100923, end: 20100923
  8. HALOPERIDOL [Concomitant]

REACTIONS (4)
  - MEMORY IMPAIRMENT [None]
  - CEREBRAL SMALL VESSEL ISCHAEMIC DISEASE [None]
  - CEREBRAL ATROPHY [None]
  - CONFUSIONAL STATE [None]
